FAERS Safety Report 22177643 (Version 1)
Quarter: 2023Q2

REPORT INFORMATION
  Report Type: Spontaneous
  Country: CA (occurrence: CA)
  Receive Date: 20230405
  Receipt Date: 20230405
  Transmission Date: 20230722
  Serious: Yes (Other)
  Sender: FDA-Public Use
  Company Number: CA-Covis Pharma Europe B.V.-2023COV00788

PATIENT
  Age: 56 Year
  Sex: Female
  Weight: 74.456 kg

DRUGS (2)
  1. OMNARIS [Suspect]
     Active Substance: CICLESONIDE
     Indication: Sinusitis
     Dosage: INTRA-NASAL; 1 EVERY 1 DAYS; 2.0 DOSAGE FORMS
     Route: 045
  2. AMOXICILLIN [Concomitant]
     Active Substance: AMOXICILLIN
     Indication: Product used for unknown indication

REACTIONS (11)
  - Ageusia [Unknown]
  - Dry mouth [Unknown]
  - Dry throat [Unknown]
  - Dyspnoea [Unknown]
  - Fatigue [Unknown]
  - Headache [Unknown]
  - Insomnia [Unknown]
  - Nasal mucosal discolouration [Unknown]
  - Thirst [Unknown]
  - Throat tightness [Unknown]
  - Toothache [Unknown]
